FAERS Safety Report 7086482-8 (Version None)
Quarter: 2010Q4

REPORT INFORMATION
  Report Type: 
  Country: None (occurrence: None)
  Receive Date: 20101105
  Receipt Date: 20101029
  Transmission Date: 20110411
  Serious: Yes (Other)
  Sender: FDA-Public Use
  Company Number: US-ABBOTT-10P-163-0682570-00

PATIENT
  Age: 19 Year
  Sex: Male
  Weight: 63.56 kg

DRUGS (1)
  1. HUMIRA [Suspect]
     Indication: CROHN'S DISEASE
     Dates: start: 20100701

REACTIONS (4)
  - ARTHRALGIA [None]
  - EYE SWELLING [None]
  - PRURITUS [None]
  - RASH [None]
